FAERS Safety Report 17276879 (Version 1)
Quarter: 2020Q1

REPORT INFORMATION
  Report Type: Spontaneous
  Country: US (occurrence: US)
  Receive Date: 20200115
  Receipt Date: 20200115
  Transmission Date: 20200409
  Serious: Yes (Life-Threatening)
  Sender: FDA-Public Use
  Company Number: None

PATIENT
  Age: 69 Year
  Sex: Male
  Weight: 108.2 kg

DRUGS (1)
  1. LEXISCAN [Suspect]
     Active Substance: REGADENOSON
     Dosage: ?          OTHER FREQUENCY:ONCE;?
     Route: 040
     Dates: start: 20180601, end: 20180601

REACTIONS (2)
  - Cardiac arrest [None]
  - Injection related reaction [None]

NARRATIVE: CASE EVENT DATE: 20180601
